FAERS Safety Report 25071876 (Version 3)
Quarter: 2025Q3

REPORT INFORMATION
  Report Type: Spontaneous
  Country: JP (occurrence: JP)
  Receive Date: 20250313
  Receipt Date: 20250911
  Transmission Date: 20251021
  Serious: Yes (Death)
  Sender: AMGEN
  Company Number: JP-BEH-2025198504

PATIENT
  Age: 69 Year
  Sex: Female
  Weight: 53 kg

DRUGS (21)
  1. TAVNEOS [Suspect]
     Active Substance: AVACOPAN
     Indication: Microscopic polyangiitis
     Dosage: 60 MG, QD
     Route: 048
     Dates: start: 20240228, end: 20240506
  2. PREDNISOLONE [Concomitant]
     Active Substance: PREDNISOLONE
     Indication: Microscopic polyangiitis
     Dosage: 30 MG, QD
     Route: 065
     Dates: start: 20240228, end: 20240229
  3. PREDNISOLONE [Concomitant]
     Active Substance: PREDNISOLONE
     Dosage: 25 MG, QD
     Route: 065
     Dates: start: 20240301, end: 20240312
  4. PREDNISOLONE [Concomitant]
     Active Substance: PREDNISOLONE
     Dosage: 20 MG, QD
     Route: 065
     Dates: start: 20240313, end: 20240328
  5. PREDNISOLONE [Concomitant]
     Active Substance: PREDNISOLONE
     Dosage: 17.5 MG, QD
     Route: 065
     Dates: start: 20240329, end: 20240409
  6. PREDNISOLONE [Concomitant]
     Active Substance: PREDNISOLONE
     Dosage: 15 MG, QD
     Route: 065
     Dates: start: 20240410, end: 20240423
  7. PREDNISOLONE [Concomitant]
     Active Substance: PREDNISOLONE
     Dosage: 12.5 MG, QD
     Route: 065
     Dates: start: 20240424
  8. RITUXIMAB [Concomitant]
     Active Substance: RITUXIMAB
     Indication: Microscopic polyangiitis
     Dosage: 550 MG, QD
     Route: 040
     Dates: start: 20240221, end: 20240221
  9. RITUXIMAB [Concomitant]
     Active Substance: RITUXIMAB
     Dosage: 550 MG, QD
     Route: 040
     Dates: start: 20240228, end: 20240228
  10. ATOVAQUONE [Concomitant]
     Active Substance: ATOVAQUONE
     Indication: Antifungal prophylaxis
     Dosage: 2 DF, QW
     Route: 048
     Dates: start: 20240228, end: 20240506
  11. HERBESSER [Concomitant]
     Active Substance: DILTIAZEM HYDROCHLORIDE
     Route: 065
  12. AMLODIPINE [Concomitant]
     Active Substance: AMLODIPINE BESYLATE
     Route: 048
  13. ELOBIXIBAT [Concomitant]
     Active Substance: ELOBIXIBAT
     Route: 048
  14. VOGLIBOSE [Concomitant]
     Active Substance: VOGLIBOSE
     Route: 048
  15. Alosenn [Concomitant]
     Route: 048
  16. ROSUVASTATIN [Concomitant]
     Active Substance: ROSUVASTATIN
     Route: 048
  17. LINAGLIPTIN [Concomitant]
     Active Substance: LINAGLIPTIN
     Route: 048
  18. ZINC [Concomitant]
     Active Substance: ZINC
     Route: 048
  19. FERRIC HYDROXIDE [Concomitant]
     Active Substance: FERRIC HYDROXIDE
     Route: 048
  20. NOVOLIN R [Concomitant]
     Active Substance: INSULIN HUMAN
     Route: 058
  21. INSULIN GLARGINE [Concomitant]
     Active Substance: INSULIN GLARGINE
     Route: 058

REACTIONS (1)
  - Pneumocystis jirovecii pneumonia [Fatal]

NARRATIVE: CASE EVENT DATE: 20240507
